FAERS Safety Report 9362617 (Version 1)
Quarter: 2013Q2

REPORT INFORMATION
  Report Type: Spontaneous
  Country: US (occurrence: US)
  Receive Date: 20130622
  Receipt Date: 20130622
  Transmission Date: 20140414
  Serious: No
  Sender: FDA-Public Use
  Company Number: US-US-EMD SERONO, INC.-7171459

PATIENT
  Sex: Female

DRUGS (2)
  1. REBIF [Suspect]
     Indication: MULTIPLE SCLEROSIS
     Route: 058
     Dates: start: 20121024
  2. MOTRIN [Concomitant]
     Indication: BACK PAIN

REACTIONS (2)
  - Menstrual disorder [Not Recovered/Not Resolved]
  - Injection site erythema [Not Recovered/Not Resolved]
